FAERS Safety Report 23469133 (Version 1)
Quarter: 2024Q1

REPORT INFORMATION
  Report Type: Spontaneous
  Country: US (occurrence: None)
  Receive Date: 20240201
  Receipt Date: 20240201
  Transmission Date: 20240410
  Serious: No
  Sender: FDA-Public Use
  Company Number: None

PATIENT
  Age: 42 Year
  Sex: Male

DRUGS (1)
  1. CYANOCOBALAMIN\SEMAGLUTIDE [Suspect]
     Active Substance: CYANOCOBALAMIN\SEMAGLUTIDE
     Dosage: 0.05 ML WEEKLY SUBCUTANEOUS
     Route: 058

REACTIONS (2)
  - Product administration error [None]
  - Incorrect dose administered [None]

NARRATIVE: CASE EVENT DATE: 20240131
